FAERS Safety Report 4299787-0 (Version None)
Quarter: 2004Q1

REPORT INFORMATION
  Report Type: 
  Country: None (occurrence: None)
  Receive Date: 20040126
  Receipt Date: 20031118
  Transmission Date: 20041129
  Serious: No
  Sender: FDA-Public Use
  Company Number: USA031152798

PATIENT
  Age: 28 Year
  Sex: Male
  Weight: 64 kg

DRUGS (1)
  1. STRATTERA [Suspect]
     Indication: ATTENTION DEFICIT/HYPERACTIVITY DISORDER
     Dosage: 60 MG/DAY
     Dates: start: 20030501

REACTIONS (4)
  - DYSPEPSIA [None]
  - ERECTILE DYSFUNCTION [None]
  - SOMNOLENCE [None]
  - TESTICULAR PAIN [None]
